FAERS Safety Report 23167837 (Version 1)
Quarter: 2023Q4

REPORT INFORMATION
  Report Type: Spontaneous
  Country: CA (occurrence: CA)
  Receive Date: 20231109
  Receipt Date: 20231109
  Transmission Date: 20240109
  Serious: Yes (Hospitalization)
  Sender: FDA-Public Use
  Company Number: CA-PFIZER INC-202300356560

PATIENT
  Age: 67 Year
  Sex: Male

DRUGS (1)
  1. SUCCINYLCHOLINE CHLORIDE [Suspect]
     Active Substance: SUCCINYLCHOLINE CHLORIDE
     Dosage: UNK
     Route: 065

REACTIONS (5)
  - Depressed level of consciousness [Unknown]
  - Hyperhidrosis [Unknown]
  - Hypertension [Unknown]
  - Respiratory arrest [Unknown]
  - Seizure [Unknown]
